FAERS Safety Report 10706744 (Version 1)
Quarter: 2015Q1

REPORT INFORMATION
  Report Type: Other
  Country: CN (occurrence: CN)
  Receive Date: 20150113
  Receipt Date: 20150113
  Transmission Date: 20150721
  Serious: Yes (Other)
  Sender: FDA-Public Use
  Company Number: CN-ASTELLAS-2015US000853

PATIENT
  Age: 11 Year
  Sex: Female
  Weight: 33 kg

DRUGS (1)
  1. MYCAMINE [Suspect]
     Active Substance: MICAFUNGIN SODIUM
     Indication: ACUTE LEUKAEMIA
     Route: 042
     Dates: start: 20140722, end: 20140722

REACTIONS (3)
  - Pruritus [Recovering/Resolving]
  - Palpitations [Recovering/Resolving]
  - Convulsions local [Recovering/Resolving]

NARRATIVE: CASE EVENT DATE: 20140722
